FAERS Safety Report 8850747 (Version 1)
Quarter: 2012Q4

REPORT INFORMATION
  Report Type: Report from Study
  Country: US (occurrence: US)
  Receive Date: 20121019
  Receipt Date: 20121019
  Transmission Date: 20130627
  Serious: Yes (Hospitalization)
  Sender: FDA-Public Use
  Company Number: US-TEVA-365606USA

PATIENT
  Age: 64 Year
  Sex: Male

DRUGS (7)
  1. TREANDA [Suspect]
     Indication: NON-HODGKIN^S LYMPHOMA
     Dosage: days 1 and 2 of each 28 day cycle
     Route: 042
     Dates: start: 20120612
  2. TREANDA [Suspect]
     Dosage: days 1 and 2 of each 28 day cycle
     Route: 042
     Dates: start: 20120613
  3. RITUXIMAB [Suspect]
     Indication: NON-HODGKIN^S LYMPHOMA
     Dosage: 1 of each 28 day cycle
     Route: 042
  4. POTASSIUM CHLORIDE [Concomitant]
     Indication: HYPOKALAEMIA
  5. FAMOTIDINE [Concomitant]
     Indication: GASTROOESOPHAGEAL REFLUX DISEASE
  6. PHENERGAN [Concomitant]
     Indication: NAUSEA
  7. TYLENOL [Concomitant]
     Indication: PAIN

REACTIONS (2)
  - Hypovolaemia [Not Recovered/Not Resolved]
  - Presyncope [Recovered/Resolved]
